FAERS Safety Report 4434278-5 (Version None)
Quarter: 2004Q3

REPORT INFORMATION
  Report Type: 
  Country: None (occurrence: None)
  Receive Date: 20040825
  Receipt Date: 20040810
  Transmission Date: 20050211
  Serious: Yes (Other)
  Sender: FDA-Public Use
  Company Number: CIP95000012

PATIENT
  Age: 57 Year
  Sex: Female

DRUGS (1)
  1. FURADANTIN [Suspect]
     Indication: GLOMERULONEPHRITIS CHRONIC
     Dosage: 100 MG, DAILY, ORAL
     Route: 048

REACTIONS (6)
  - EOSINOPHIL COUNT INCREASED [None]
  - LUNG INFILTRATION [None]
  - PALPITATIONS [None]
  - PULMONARY FIBROSIS [None]
  - RED BLOOD CELL SEDIMENTATION RATE INCREASED [None]
  - WHITE BLOOD CELL COUNT INCREASED [None]
